FAERS Safety Report 13911815 (Version 1)
Quarter: 2017Q3

REPORT INFORMATION
  Report Type: Spontaneous
  Country: US (occurrence: US)
  Receive Date: 20170825
  Receipt Date: 20170825
  Transmission Date: 20171127
  Serious: No
  Sender: FDA-Public Use
  Company Number: None

PATIENT
  Age: 45 Year
  Sex: Female
  Weight: 55 kg

DRUGS (2)
  1. FLUVOXAMINE [Suspect]
     Active Substance: FLUVOXAMINE
  2. HIDROXIL [Suspect]
     Active Substance: ALUMINUM HYDROXIDE

REACTIONS (3)
  - Musculoskeletal stiffness [None]
  - Peripheral swelling [None]
  - Food intolerance [None]

NARRATIVE: CASE EVENT DATE: 20170821
